FAERS Safety Report 9725783 (Version 1)
Quarter: 2013Q4

REPORT INFORMATION
  Report Type: Not Available
  Country: ES (occurrence: ES)
  Receive Date: 20131203
  Receipt Date: 20131203
  Transmission Date: 20140711
  Serious: Yes (Life-Threatening, Hospitalization)
  Sender: FDA-Public Use
  Company Number: ES-ASTELLAS-2013US012419

PATIENT
  Age: 7 Year
  Sex: Male
  Weight: 28 kg

DRUGS (8)
  1. AMBISOME [Suspect]
     Indication: ZYGOMYCOSIS
     Dosage: 280 MG, UNKNOWN/D
     Route: 042
     Dates: start: 20130228
  2. AMBISOME [Suspect]
     Dosage: 50 MG, UNKNOWN/D
     Route: 055
     Dates: start: 20130228
  3. CANCIDAS [Suspect]
     Indication: PRODUCT USED FOR UNKNOWN INDICATION
     Dosage: 50 MG, UID/QD, 50MG EN 100ML DE SF EN 1H
     Route: 042
     Dates: start: 20130228
  4. NOXAFIL [Suspect]
     Indication: ZYGOMYCOSIS
     Dosage: 200 MG, Q6 HOURS
     Route: 048
     Dates: start: 20130228, end: 20130314
  5. MEROPENEM [Concomitant]
     Indication: PRODUCT USED FOR UNKNOWN INDICATION
     Dosage: UNK
     Route: 065
     Dates: start: 20130228
  6. CLARITROMICINA [Concomitant]
     Indication: PRODUCT USED FOR UNKNOWN INDICATION
     Dosage: UNK
     Route: 065
     Dates: start: 20130228
  7. OMEPRAZOL                          /00661201/ [Concomitant]
     Indication: PRODUCT USED FOR UNKNOWN INDICATION
     Dosage: UNK
     Route: 065
     Dates: start: 20130228
  8. LEVEMIR [Concomitant]
     Indication: PRODUCT USED FOR UNKNOWN INDICATION
     Dosage: UNK
     Route: 065
     Dates: start: 20130228

REACTIONS (3)
  - Nephropathy [Unknown]
  - Hypokalaemia [Unknown]
  - Hypomagnesaemia [Unknown]
